FAERS Safety Report 22099541 (Version 1)
Quarter: 2023Q1

REPORT INFORMATION
  Report Type: Spontaneous
  Country: IN (occurrence: IN)
  Receive Date: 20230315
  Receipt Date: 20230315
  Transmission Date: 20230418
  Serious: Yes (Hospitalization)
  Sender: FDA-Public Use
  Company Number: IN-CMP PHARMA-2023CMP00009

PATIENT
  Age: 64 Year
  Sex: Female
  Weight: 65 kg

DRUGS (22)
  1. ISONIAZID [Suspect]
     Active Substance: ISONIAZID
     Indication: Bone tuberculosis
     Dosage: INITIAL HRZE TREATMENT
  2. ISONIAZID [Suspect]
     Active Substance: ISONIAZID
     Dosage: 300 MG, 1X/DAY
  3. RIFAMPIN [Concomitant]
     Active Substance: RIFAMPIN
     Indication: Bone tuberculosis
     Dosage: INITIAL HRZE TREATMENT
  4. RIFAMPIN [Concomitant]
     Active Substance: RIFAMPIN
     Dosage: 600 MG, 1X/DAY
  5. RIFAMPIN [Concomitant]
     Active Substance: RIFAMPIN
     Dosage: REINTRODUCED ON DAY 19
  6. RIFAMPIN [Concomitant]
     Active Substance: RIFAMPIN
     Dosage: 600 MG, 1X/DAY
  7. PYRAZINAMIDE [Concomitant]
     Active Substance: PYRAZINAMIDE
     Indication: Bone tuberculosis
     Dosage: INITIAL HRZE TREATMENT
  8. PYRAZINAMIDE [Concomitant]
     Active Substance: PYRAZINAMIDE
     Dosage: 1500 MG, 1X/DAY
  9. ETHAMBUTOL [Concomitant]
     Active Substance: ETHAMBUTOL HYDROCHLORIDE
     Indication: Bone tuberculosis
     Dosage: INITIAL HRZE
  10. ETHAMBUTOL [Concomitant]
     Active Substance: ETHAMBUTOL HYDROCHLORIDE
     Dosage: 900 MG, 1X/DAY
  11. METFORMIN [Concomitant]
     Active Substance: METFORMIN HYDROCHLORIDE
     Dosage: 1000 MG, 1X/DAY
  12. GLIMEPIRIDE [Concomitant]
     Active Substance: GLIMEPIRIDE
     Dosage: 2 MG, 1X/DAY
  13. AMLODIPINE [Concomitant]
     Active Substance: AMLODIPINE BESYLATE
     Dosage: 10 MG, 1X/DAY
  14. LEVOFLOXACIN [Concomitant]
     Active Substance: LEVOFLOXACIN
     Indication: Bone tuberculosis
     Dosage: 2ND ATT TREATMENT
  15. LEVOFLOXACIN [Concomitant]
     Active Substance: LEVOFLOXACIN
     Dosage: REPLACED RIFAMPICIN ON DAY 12
  16. LEVOFLOXACIN [Concomitant]
     Active Substance: LEVOFLOXACIN
     Dosage: 750 MG, 1X/DAY
  17. STREPTOMYCIN [Concomitant]
     Active Substance: STREPTOMYCIN SULFATE
     Indication: Hepatitis
     Dosage: 2ND ATT TREATMENT
  18. PIPERACILLIN AND TAZOBACTAM [Concomitant]
     Active Substance: PIPERACILLIN SODIUM\TAZOBACTAM SODIUM
     Indication: Evidence based treatment
     Dosage: DAY 1-9
  19. INSULIN NOS [Concomitant]
     Active Substance: INSULIN NOS
     Route: 058
  20. PYRIDOXINE [Concomitant]
     Active Substance: PYRIDOXINE
     Indication: Prophylaxis
     Dosage: 20 MG, 1X/DAY
  21. PYRIDOXINE [Concomitant]
     Active Substance: PYRIDOXINE
     Dosage: 100 MG, 1X/DAY
  22. PYRIDOXINE [Concomitant]
     Active Substance: PYRIDOXINE
     Dosage: 20 MG, 1X/DAY

REACTIONS (1)
  - Delirium [Recovered/Resolved]
